FAERS Safety Report 26158351 (Version 1)
Quarter: 2025Q4

REPORT INFORMATION
  Report Type: Spontaneous
  Country: US (occurrence: US)
  Receive Date: 20251215
  Receipt Date: 20251215
  Transmission Date: 20260118
  Serious: Yes (Hospitalization, Other)
  Sender: MYLAN
  Company Number: US-MYLANLABS-2025M1106398

PATIENT
  Age: 63 Year
  Sex: Female

DRUGS (20)
  1. HYDROCORTISONE [Interacting]
     Active Substance: HYDROCORTISONE
     Indication: Hormone replacement therapy
     Dosage: UNK
     Route: 061
  2. HYDROCORTISONE [Interacting]
     Active Substance: HYDROCORTISONE
     Dosage: UNK
     Route: 048
  3. HYDROCORTISONE [Interacting]
     Active Substance: HYDROCORTISONE
     Dosage: UNK
     Route: 048
  4. HYDROCORTISONE [Interacting]
     Active Substance: HYDROCORTISONE
     Dosage: UNK
     Route: 061
  5. PREDNISONE [Suspect]
     Active Substance: PREDNISONE
     Indication: Adrenal insufficiency
     Dosage: UNK
  6. PREDNISONE [Suspect]
     Active Substance: PREDNISONE
     Dosage: UNK
     Route: 065
  7. PREDNISONE [Suspect]
     Active Substance: PREDNISONE
     Dosage: UNK
     Route: 065
  8. PREDNISONE [Suspect]
     Active Substance: PREDNISONE
     Dosage: UNK
  9. FLUDROCORTISONE [Suspect]
     Active Substance: FLUDROCORTISONE
     Indication: Adrenal insufficiency
     Dosage: UNK
  10. FLUDROCORTISONE [Suspect]
     Active Substance: FLUDROCORTISONE
     Dosage: UNK
     Route: 065
  11. FLUDROCORTISONE [Suspect]
     Active Substance: FLUDROCORTISONE
     Dosage: UNK
     Route: 065
  12. FLUDROCORTISONE [Suspect]
     Active Substance: FLUDROCORTISONE
     Dosage: UNK
  13. TIRZEPATIDE [Interacting]
     Active Substance: TIRZEPATIDE
     Indication: Type 2 diabetes mellitus
     Dosage: UNK
  14. TIRZEPATIDE [Interacting]
     Active Substance: TIRZEPATIDE
     Dosage: UNK
  15. TIRZEPATIDE [Interacting]
     Active Substance: TIRZEPATIDE
     Dosage: UNK
     Route: 065
  16. TIRZEPATIDE [Interacting]
     Active Substance: TIRZEPATIDE
     Dosage: UNK
     Route: 065
  17. TIRZEPATIDE [Interacting]
     Active Substance: TIRZEPATIDE
     Dosage: UNK,  INITIALLY WITHDRAWN AND LATER STARTED AGAIN
  18. TIRZEPATIDE [Interacting]
     Active Substance: TIRZEPATIDE
     Dosage: UNK,  INITIALLY WITHDRAWN AND LATER STARTED AGAIN
  19. TIRZEPATIDE [Interacting]
     Active Substance: TIRZEPATIDE
     Dosage: UNK,  INITIALLY WITHDRAWN AND LATER STARTED AGAIN
     Route: 065
  20. TIRZEPATIDE [Interacting]
     Active Substance: TIRZEPATIDE
     Dosage: UNK,  INITIALLY WITHDRAWN AND LATER STARTED AGAIN
     Route: 065

REACTIONS (3)
  - Adrenal insufficiency [Recovering/Resolving]
  - Drug interaction [Recovering/Resolving]
  - Drug ineffective [Unknown]
